FAERS Safety Report 10205471 (Version 3)
Quarter: 2014Q3

REPORT INFORMATION
  Report Type: Spontaneous
  Country: AU (occurrence: AU)
  Receive Date: 20140529
  Receipt Date: 20140703
  Transmission Date: 20150326
  Serious: Yes (Death, Hospitalization)
  Sender: FDA-Public Use
  Company Number: AU-BAYER-2014-077063

PATIENT
  Age: 30 Year
  Sex: Male

DRUGS (1)
  1. TRASYLOL [Suspect]
     Active Substance: APROTININ
     Indication: HAEMORRHAGE
     Dosage: UNK
     Dates: start: 19780527

REACTIONS (2)
  - Off label use [None]
  - Myocardial infarction [Fatal]

NARRATIVE: CASE EVENT DATE: 19780527
